FAERS Safety Report 21946503 (Version 1)
Quarter: 2023Q1

REPORT INFORMATION
  Report Type: Spontaneous
  Country: US (occurrence: None)
  Receive Date: 20230202
  Receipt Date: 20230202
  Transmission Date: 20230418
  Serious: Yes (Life-Threatening, Hospitalization, Other)
  Sender: FDA-Public Use
  Company Number: None

PATIENT
  Age: 80 Year
  Sex: Female
  Weight: 44.3 kg

DRUGS (7)
  1. CEFEPIME [Suspect]
     Active Substance: CEFEPIME HYDROCHLORIDE
     Indication: Sepsis
     Dosage: 1 G GRAM DAILY INTRAVENOUS
     Route: 042
     Dates: start: 20230126, end: 20230129
  2. Vancomycin 1250mg IV [Concomitant]
     Dates: start: 20230126, end: 20230126
  3. Apixaban 2.5mg PO [Concomitant]
     Dates: start: 20230126
  4. Atorvastatin 20mg PO [Concomitant]
     Dates: start: 20230126
  5. Calcium carbonate 1000mg PO [Concomitant]
     Dates: start: 20230126
  6. Cholecalciferol 1000 units PO [Concomitant]
     Dates: start: 20230126
  7. Hydralazine 100mg PO [Concomitant]
     Dates: start: 20230126

REACTIONS (4)
  - Depressed level of consciousness [None]
  - Status epilepticus [None]
  - Pyrexia [None]
  - Chills [None]

NARRATIVE: CASE EVENT DATE: 20230130
